FAERS Safety Report 22089150 (Version 1)
Quarter: 2023Q1

REPORT INFORMATION
  Report Type: Report from Study
  Country: US (occurrence: US)
  Receive Date: 20230313
  Receipt Date: 20230313
  Transmission Date: 20230418
  Serious: No
  Sender: FDA-Public Use
  Company Number: US-ABBVIE-22K-163-4442652-00

PATIENT
  Age: 64 Year
  Sex: Female

DRUGS (1)
  1. HUMIRA [Suspect]
     Active Substance: ADALIMUMAB
     Indication: Rheumatoid arthritis
     Route: 058
     Dates: start: 20210903

REACTIONS (8)
  - Arthritis [Unknown]
  - Sinusitis [Not Recovered/Not Resolved]
  - Viral infection [Recovering/Resolving]
  - Upper respiratory tract infection [Unknown]
  - Pain [Unknown]
  - COVID-19 [Unknown]
  - Hot flush [Unknown]
  - Inflammation [Unknown]

NARRATIVE: CASE EVENT DATE: 20230201
